FAERS Safety Report 16020890 (Version 27)
Quarter: 2024Q3

REPORT INFORMATION
  Report Type: Spontaneous
  Country: CA (occurrence: CA)
  Receive Date: 20190301
  Receipt Date: 20240814
  Transmission Date: 20241016
  Serious: Yes (Death, Hospitalization, Other)
  Sender: AUROBINDO
  Company Number: CA-AUROBINDO-AUR-APL-2019-010743

PATIENT
  Age: 54 Year
  Sex: Male

DRUGS (49)
  1. EFAVIRENZ [Interacting]
     Active Substance: EFAVIRENZ
     Indication: HIV infection
     Dosage: 400 MILLIGRAM, TWO TIMES A DAY
     Route: 065
  2. EFAVIRENZ [Interacting]
     Active Substance: EFAVIRENZ
     Dosage: UNK
     Route: 048
  3. LAMIVUDINE [Interacting]
     Active Substance: LAMIVUDINE
     Indication: HIV infection
     Dosage: UNK
     Route: 048
  4. LAMIVUDINE [Interacting]
     Active Substance: LAMIVUDINE
     Dosage: UNK
     Route: 005
  5. QUETIAPINE [Interacting]
     Active Substance: QUETIAPINE
     Indication: Bipolar disorder
     Dosage: UNK
     Route: 048
  6. QUETIAPINE [Interacting]
     Active Substance: QUETIAPINE
     Indication: Depression
  7. CITALOPRAM [Suspect]
     Active Substance: CITALOPRAM\CITALOPRAM HYDROBROMIDE
     Indication: Mental disorder
     Dosage: UNK
     Route: 065
  8. CELECOXIB [Suspect]
     Active Substance: CELECOXIB
     Indication: Psychotic disorder
     Dosage: UNK
     Route: 065
  9. QUETIAPINE [Interacting]
     Active Substance: QUETIAPINE
     Indication: Bipolar disorder
     Dosage: 400 MILLIGRAM, TWO TIMES A DAY
     Route: 048
  10. SERTRALINE [Interacting]
     Active Substance: SERTRALINE HYDROCHLORIDE
     Indication: Bipolar disorder
     Dosage: 1 DOSAGE FORM, ONCE A DAY
     Route: 065
  11. SERTRALINE [Interacting]
     Active Substance: SERTRALINE HYDROCHLORIDE
     Dosage: UNK
     Route: 048
  12. SERTRALINE [Interacting]
     Active Substance: SERTRALINE HYDROCHLORIDE
     Dosage: 400 MILLIGRAM, TWO TIMES A DAY
     Route: 065
  13. SERTRALINE [Interacting]
     Active Substance: SERTRALINE HYDROCHLORIDE
     Indication: Bipolar disorder
     Dosage: UNK
     Route: 048
  14. SERTRALINE [Interacting]
     Active Substance: SERTRALINE HYDROCHLORIDE
     Dosage: UNK
     Route: 065
  15. ABACAVIR SULFATE\LAMIVUDINE\ZIDOVUDINE [Suspect]
     Active Substance: ABACAVIR SULFATE\LAMIVUDINE\ZIDOVUDINE
     Indication: HIV infection
     Dosage: UNK
     Route: 065
  16. ATAZANAVIR [Suspect]
     Active Substance: ATAZANAVIR
     Indication: HIV infection
     Dosage: UNK
     Route: 048
  17. ATAZANAVIR [Suspect]
     Active Substance: ATAZANAVIR
     Dosage: UNK
     Route: 005
  18. ATAZANAVIR SULFATE [Interacting]
     Active Substance: ATAZANAVIR SULFATE
     Indication: HIV infection
     Dosage: UNK
     Route: 005
  19. ATAZANAVIR SULFATE\COBICISTAT [Suspect]
     Active Substance: ATAZANAVIR SULFATE\COBICISTAT
     Indication: HIV infection
     Dosage: UNK
     Route: 048
  20. BUPROPION [Suspect]
     Active Substance: BUPROPION
     Indication: Bipolar disorder
     Dosage: UNK
     Route: 048
  21. BUPROPION HYDROCHLORIDE [Interacting]
     Active Substance: BUPROPION HYDROCHLORIDE
     Indication: Bipolar disorder
     Dosage: UNK
     Route: 048
  22. CLONAZEPAM [Suspect]
     Active Substance: CLONAZEPAM
     Indication: Bipolar disorder
     Dosage: UNK
     Route: 048
  23. ISENTRESS [Interacting]
     Active Substance: RALTEGRAVIR POTASSIUM
     Indication: HIV infection
     Dosage: 400 MILLIGRAM, TWO TIMES A DAY
     Route: 048
  24. ISENTRESS [Interacting]
     Active Substance: RALTEGRAVIR POTASSIUM
     Dosage: 1 DOSAGE FORM, ONCE A DAY
     Route: 048
  25. KALETRA [Interacting]
     Active Substance: LOPINAVIR\RITONAVIR
     Indication: HIV infection
     Dosage: UNK
     Route: 048
  26. LOPINAVIR\RITONAVIR [Interacting]
     Active Substance: LOPINAVIR\RITONAVIR
     Indication: HIV infection
     Dosage: UNK
     Route: 048
  27. LOPINAVIR\RITONAVIR [Interacting]
     Active Substance: LOPINAVIR\RITONAVIR
     Dosage: UNK
     Route: 065
  28. LAMIVUDINE\ZIDOVUDINE [Interacting]
     Active Substance: LAMIVUDINE\ZIDOVUDINE
     Indication: Product used for unknown indication
     Dosage: UNK
     Route: 065
  29. RISPERIDONE [Suspect]
     Active Substance: RISPERIDONE
     Indication: Depression
     Dosage: UNK
     Route: 065
  30. TENOFOVIR DISOPROXIL FUMARATE [Suspect]
     Active Substance: TENOFOVIR DISOPROXIL FUMARATE
     Indication: Product used for unknown indication
     Dosage: UNK
     Route: 065
  31. RALTEGRAVIR [Interacting]
     Active Substance: RALTEGRAVIR
     Indication: HIV infection
     Dosage: 400 MILLIGRAM, TWO TIMES A DAY
     Route: 048
  32. RALTEGRAVIR [Interacting]
     Active Substance: RALTEGRAVIR
     Dosage: 400 MICROGRAM, TWO TIMES A DAY
     Route: 048
  33. RALTEGRAVIR [Interacting]
     Active Substance: RALTEGRAVIR
     Dosage: UNK
     Route: 065
  34. RALTEGRAVIR POTASSIUM [Interacting]
     Active Substance: RALTEGRAVIR POTASSIUM
     Indication: HIV infection
     Dosage: 400 MILLIGRAM, TWO TIMES A DAY
     Route: 048
  35. RALTEGRAVIR POTASSIUM [Interacting]
     Active Substance: RALTEGRAVIR POTASSIUM
     Dosage: 400 MILLILITER, ONCE A DAY
     Route: 048
  36. RALTEGRAVIR POTASSIUM [Interacting]
     Active Substance: RALTEGRAVIR POTASSIUM
     Dosage: 2 DOSAGE FORM, ONCE A DAY
     Route: 048
  37. REYATAZ [Interacting]
     Active Substance: ATAZANAVIR SULFATE
     Indication: HIV infection
     Dosage: UNK
     Route: 065
  38. RIVOTRIL [Interacting]
     Active Substance: CLONAZEPAM
     Indication: Bipolar disorder
     Dosage: UNK
     Route: 048
  39. SUSTIVA [Interacting]
     Active Substance: EFAVIRENZ
     Indication: HIV infection
     Dosage: 400 MILLIGRAM, TWO TIMES A DAY
     Route: 048
  40. SUSTIVA [Interacting]
     Active Substance: EFAVIRENZ
     Indication: HIV infection
     Dosage: 400 MILLIGRAM, TWO TIMES A DAY
     Route: 048
  41. ATAZANAVIR [Interacting]
     Active Substance: ATAZANAVIR
     Indication: HIV infection
     Dosage: UNK
     Route: 048
  42. VALPROIC ACID [Interacting]
     Active Substance: VALPROIC ACID
     Indication: Bipolar disorder
     Dosage: UNK
     Route: 048
  43. WELLBUTRIN XL [Interacting]
     Active Substance: BUPROPION HYDROCHLORIDE
     Indication: Bipolar disorder
     Dosage: UNK
     Route: 048
  44. ZOPICLONE [Interacting]
     Active Substance: ZOPICLONE
     Indication: Bipolar disorder
     Dosage: UNK
     Route: 048
  45. BUPROPION HYDROCHLORIDE [Concomitant]
     Active Substance: BUPROPION HYDROCHLORIDE
     Indication: Product used for unknown indication
     Dosage: UNK
     Route: 065
  46. ENFUVIRTIDE [Concomitant]
     Active Substance: ENFUVIRTIDE
     Indication: HIV infection
     Dosage: UNK
     Route: 048
  47. ENFUVIRTIDE [Concomitant]
     Active Substance: ENFUVIRTIDE
     Dosage: UNK
     Route: 058
  48. ENFUVIRTIDE [Concomitant]
     Active Substance: ENFUVIRTIDE
     Indication: HIV infection
     Dosage: UNK
     Route: 058
  49. ENFUVIRTIDE [Concomitant]
     Active Substance: ENFUVIRTIDE
     Indication: Product used for unknown indication
     Dosage: UNK
     Route: 065

REACTIONS (16)
  - Depression [Fatal]
  - Loss of personal independence in daily activities [Fatal]
  - Drug interaction [Fatal]
  - Prescribed overdose [Fatal]
  - Intentional product use issue [Fatal]
  - Anxiety [Fatal]
  - Product use in unapproved indication [Fatal]
  - Depressive symptom [Fatal]
  - Depression suicidal [Fatal]
  - Paranoia [Fatal]
  - Tearfulness [Fatal]
  - Suicidal ideation [Fatal]
  - Psychotic disorder [Fatal]
  - Psychomotor skills impaired [Fatal]
  - Incorrect route of product administration [Fatal]
  - Psychiatric decompensation [Fatal]
